FAERS Safety Report 15019396 (Version 2)
Quarter: 2018Q3

REPORT INFORMATION
  Report Type: Spontaneous
  Country: DE (occurrence: DE)
  Receive Date: 20180617
  Receipt Date: 20180724
  Transmission Date: 20181010
  Serious: Yes (Hospitalization)
  Sender: FDA-Public Use
  Company Number: PHHY2018DE023537

PATIENT
  Age: 58 Year
  Sex: Female
  Weight: 41 kg

DRUGS (8)
  1. PHYTOMENADIONE [Concomitant]
     Active Substance: PHYTONADIONE
     Indication: PROPHYLAXIS
     Route: 065
  2. ERBITUX [Suspect]
     Active Substance: CETUXIMAB
     Dosage: 400 MG/M2, UNK
     Route: 042
  3. CARBOPLATIN. [Suspect]
     Active Substance: CARBOPLATIN
     Indication: HEAD AND NECK CANCER
     Dosage: 5 UNK, UNK (AUC)
     Route: 065
     Dates: start: 20170621, end: 20180720
  4. 5?FLUOROURACIL [Suspect]
     Active Substance: FLUOROURACIL
     Indication: HEAD AND NECK CANCER
     Dosage: 3000 MG/M2, QW (9000 MG/M2 MILLIGRAM/SQ METER)
     Route: 065
     Dates: start: 20170621, end: 20170626
  5. PARACETAMOL [Concomitant]
     Active Substance: ACETAMINOPHEN
     Indication: PREMEDICATION
     Route: 065
  6. PARACETAMOL [Concomitant]
     Active Substance: ACETAMINOPHEN
     Indication: PREMEDICATION
  7. 5?FLUOROURACIL [Suspect]
     Active Substance: FLUOROURACIL
     Dosage: 200 MG/M2, QW
     Route: 065
     Dates: start: 20170720
  8. ERBITUX [Suspect]
     Active Substance: CETUXIMAB
     Indication: HEAD AND NECK CANCER
     Dosage: 250 MG/M2, QW
     Route: 042
     Dates: start: 20170704

REACTIONS (5)
  - Platelet count decreased [Not Recovered/Not Resolved]
  - Mucosal inflammation [Unknown]
  - Anaemia [Recovered/Resolved]
  - Enterocolitis infectious [Recovered/Resolved]
  - Neutrophil count decreased [Unknown]

NARRATIVE: CASE EVENT DATE: 201706
